FAERS Safety Report 5477371-0 (Version None)
Quarter: 2007Q4

REPORT INFORMATION
  Report Type: 
  Country: None (occurrence: None)
  Receive Date: 20071001
  Receipt Date: 20070911
  Transmission Date: 20080405
  Serious: Yes (Other)
  Sender: FDA-Public Use
  Company Number: 2007VX002254

PATIENT
  Sex: Female

DRUGS (3)
  1. TASMAR [Suspect]
     Indication: PARKINSON'S DISEASE
     Dosage: 1 DF;TID;PO
     Route: 048
     Dates: start: 20070614, end: 20070708
  2. COZAAR [Concomitant]
  3. MADOPAR [Concomitant]

REACTIONS (1)
  - RASH ERYTHEMATOUS [None]
